FAERS Safety Report 10150070 (Version 2)
Quarter: 2014Q2

REPORT INFORMATION
  Report Type: Spontaneous
  Country: GB (occurrence: GB)
  Receive Date: 20140502
  Receipt Date: 20140502
  Transmission Date: 20141212
  Serious: Yes (Life-Threatening, Hospitalization)
  Sender: FDA-Public Use
  Company Number: GB-ABBVIE-10P-167-0666186-00

PATIENT
  Sex: Male
  Weight: 60 kg

DRUGS (8)
  1. CYCLOSPORIN [Suspect]
     Indication: PSORIASIS
     Route: 048
     Dates: start: 200703, end: 200705
  2. CYCLOSPORIN [Suspect]
     Dosage: IN TWO DOSES
  3. HUMIRA 40 MG/ 0.8 ML PRE-FILLED SYRINGE [Suspect]
     Indication: PSORIASIS
     Dates: start: 201002
  4. HUMIRA 40 MG/ 0.8 ML PRE-FILLED SYRINGE [Suspect]
     Dosage: WEEK 1
  5. HUMIRA 40 MG/ 0.8 ML PRE-FILLED SYRINGE [Suspect]
     Dosage: WEEK 2
  6. HUMIRA 40 MG/ 0.8 ML PRE-FILLED SYRINGE [Suspect]
  7. ACITRETIN [Concomitant]
     Indication: PSORIASIS
     Route: 048
     Dates: start: 20100901
  8. ACITRETIN [Concomitant]
     Route: 048
     Dates: end: 200701

REACTIONS (3)
  - Endocarditis [Recovering/Resolving]
  - Arthritis reactive [Unknown]
  - Treatment failure [Unknown]
